FAERS Safety Report 7637936-4 (Version None)
Quarter: 2011Q3

REPORT INFORMATION
  Report Type: 
  Country: None (occurrence: None)
  Receive Date: 20110727
  Receipt Date: 20110420
  Transmission Date: 20111222
  Serious: No
  Sender: FDA-Public Use
  Company Number: US-BAYER-2011-041221

PATIENT
  Age: 31 Year
  Sex: Female

DRUGS (1)
  1. MIRENA [Suspect]
     Dosage: UNK
     Dates: start: 20101109, end: 20110419

REACTIONS (3)
  - DEVICE DISLOCATION [None]
  - DEVICE DIFFICULT TO USE [None]
  - ABDOMINAL PAIN [None]
